FAERS Safety Report 16165478 (Version 3)
Quarter: 2022Q4

REPORT INFORMATION
  Report Type: Spontaneous
  Country: US (occurrence: None)
  Receive Date: 20190405
  Receipt Date: 20221208
  Transmission Date: 20230112
  Serious: Yes (Other)
  Sender: FDA-Public Use
  Company Number: 2019SE50641

PATIENT
  Age: 55 Year
  Sex: Male
  Weight: 140.6 kg

DRUGS (38)
  1. NEXIUM [Suspect]
     Active Substance: ESOMEPRAZOLE MAGNESIUM
     Indication: Gastrooesophageal reflux disease
     Dosage: 40
     Route: 048
     Dates: start: 2008, end: 2015
  2. NEXIUM [Suspect]
     Active Substance: ESOMEPRAZOLE MAGNESIUM
     Indication: Gastrooesophageal reflux disease
     Dosage: 40.0MG UNKNOWN
     Route: 048
     Dates: start: 20080807
  3. NEXIUM [Suspect]
     Active Substance: ESOMEPRAZOLE MAGNESIUM
     Indication: Gastrooesophageal reflux disease
     Dosage: 40.0MG UNKNOWN
     Route: 048
     Dates: start: 2011, end: 2014
  4. NEXIUM [Suspect]
     Active Substance: ESOMEPRAZOLE MAGNESIUM
     Indication: Gastrooesophageal reflux disease
     Dosage: 40.0MG UNKNOWN
     Route: 048
     Dates: start: 2008, end: 2012
  5. NEXIUM [Suspect]
     Active Substance: ESOMEPRAZOLE MAGNESIUM
     Indication: Gastrooesophageal reflux disease
     Dosage: GENERIC40.0MG UNKNOWN
     Route: 065
     Dates: start: 2014, end: 2015
  6. NEXIUM [Suspect]
     Active Substance: ESOMEPRAZOLE MAGNESIUM
     Indication: Gastrooesophageal reflux disease
     Dosage: GENERIC40.0MG UNKNOWN
     Route: 065
     Dates: start: 2015, end: 2016
  7. NEXIUM 24HR [Suspect]
     Active Substance: ESOMEPRAZOLE MAGNESIUM
     Route: 048
  8. PRILOSEC [Suspect]
     Active Substance: OMEPRAZOLE MAGNESIUM
     Dosage: 20.0MG UNKNOWN
     Route: 048
     Dates: start: 2009
  9. AMBIEN [Concomitant]
     Active Substance: ZOLPIDEM TARTRATE
     Indication: Sleep disorder
     Route: 065
     Dates: start: 2006
  10. PRISTIQ EXTENDED-RELEASE [Concomitant]
     Active Substance: DESVENLAFAXINE SUCCINATE
     Indication: Depression
     Route: 065
     Dates: start: 2008
  11. CLONAZEPAM [Concomitant]
     Active Substance: CLONAZEPAM
     Indication: Depression
     Route: 065
     Dates: start: 2006
  12. ABILIFY [Concomitant]
     Active Substance: ARIPIPRAZOLE
     Indication: Bipolar disorder
     Route: 065
     Dates: start: 2006
  13. GEODON [Concomitant]
     Active Substance: ZIPRASIDONE HYDROCHLORIDE\ZIPRASIDONE MESYLATE
     Indication: Bipolar disorder
     Route: 065
     Dates: start: 2006
  14. LIPITOR [Concomitant]
     Active Substance: ATORVASTATIN CALCIUM
     Dates: start: 20070226
  15. ACTOS [Concomitant]
     Active Substance: PIOGLITAZONE HYDROCHLORIDE
     Dates: start: 20070120
  16. LEVITRA [Concomitant]
     Active Substance: VARDENAFIL HYDROCHLORIDE
     Dates: start: 20070120
  17. LISINOPRIL [Concomitant]
     Active Substance: LISINOPRIL
     Dates: start: 20070120
  18. GLYBURIDE [Concomitant]
     Active Substance: GLYBURIDE
     Dates: start: 20071218
  19. SULFAMETHOXAZOLE\TRIMETHOPRIM [Concomitant]
     Active Substance: SULFAMETHOXAZOLE\TRIMETHOPRIM
     Dates: start: 20071104
  20. CEPHALEXIN [Concomitant]
     Active Substance: CEPHALEXIN
     Dates: start: 20071023
  21. BYETTA [Concomitant]
     Active Substance: EXENATIDE
     Dates: start: 20071001
  22. RANITIDINE HYDROCHLORIDE [Concomitant]
     Active Substance: RANITIDINE HYDROCHLORIDE
     Dates: start: 20071001
  23. TRIAMCINOLONE [Concomitant]
     Active Substance: TRIAMCINOLONE
     Dates: start: 20071001
  24. NASONEX [Concomitant]
     Active Substance: MOMETASONE FUROATE
     Dates: start: 20070123
  25. AMOXICILLIN [Concomitant]
     Active Substance: AMOXICILLIN
     Dates: start: 20070205
  26. CIALIS [Concomitant]
     Active Substance: TADALAFIL
     Dates: start: 20080215
  27. HUMALOG [Concomitant]
     Active Substance: INSULIN LISPRO
  28. KEFLEX [Concomitant]
     Active Substance: CEPHALEXIN
     Dates: start: 20110613
  29. ACETAMINOPHEN [Concomitant]
     Active Substance: ACETAMINOPHEN
     Indication: Headache
     Route: 065
     Dates: start: 2006
  30. ACETAMINOPHEN [Concomitant]
     Active Substance: ACETAMINOPHEN
     Indication: Pain
     Route: 065
     Dates: start: 2006
  31. PEPCID AC [Concomitant]
     Active Substance: FAMOTIDINE
  32. FAMOTIDINE [Concomitant]
     Active Substance: FAMOTIDINE
  33. FAMOTIDINE [Concomitant]
     Active Substance: FAMOTIDINE
  34. GENERIC FAMOTIDINE [Concomitant]
  35. KLOR-CON [Concomitant]
     Active Substance: POTASSIUM CHLORIDE
  36. METFORMIN [Concomitant]
     Active Substance: METFORMIN HYDROCHLORIDE
  37. ANDROGEL [Concomitant]
     Active Substance: TESTOSTERONE
  38. LOSARTAN [Concomitant]
     Active Substance: LOSARTAN

REACTIONS (7)
  - Chronic kidney disease [Not Recovered/Not Resolved]
  - Renal failure [Unknown]
  - Gastrooesophageal reflux disease [Not Recovered/Not Resolved]
  - Hypertension [Unknown]
  - Ulcer [Unknown]
  - Anxiety [Unknown]
  - Emotional distress [Unknown]

NARRATIVE: CASE EVENT DATE: 20070101
